FAERS Safety Report 5963503-4 (Version None)
Quarter: 2008Q4

REPORT INFORMATION
  Report Type: 
  Country: None (occurrence: None)
  Receive Date: 20081124
  Receipt Date: 20080506
  Transmission Date: 20090506
  Serious: No
  Sender: FDA-Public Use
  Company Number: US-BAYER-200812123BCC

PATIENT
  Age: 46 Year
  Sex: Female
  Weight: 82 kg

DRUGS (1)
  1. ALEVE-D SINUS + COLD [Suspect]
     Indication: NASOPHARYNGITIS
     Route: 048
     Dates: start: 20080401

REACTIONS (1)
  - SINUS CONGESTION [None]
